FAERS Safety Report 11132085 (Version 1)
Quarter: 2015Q2

REPORT INFORMATION
  Report Type: Spontaneous
  Country: US (occurrence: None)
  Receive Date: 20150521
  Receipt Date: 20150521
  Transmission Date: 20150821
  Serious: No
  Sender: FDA-Public Use
  Company Number: None

PATIENT
  Age: 56 Year
  Sex: Female
  Weight: 55.34 kg

DRUGS (3)
  1. VITAMIN D [Concomitant]
     Active Substance: CHOLECALCIFEROL
  2. IBANDRONATE SODIUM. [Suspect]
     Active Substance: IBANDRONATE SODIUM
     Indication: OSTEOPENIA
     Route: 048
     Dates: start: 20150411, end: 20150511
  3. SIMVASTATIN. [Concomitant]
     Active Substance: SIMVASTATIN

REACTIONS (9)
  - Nausea [None]
  - Dizziness [None]
  - Discomfort [None]
  - Asthenia [None]
  - Malaise [None]
  - Intestinal obstruction [None]
  - Influenza [None]
  - Abdominal discomfort [None]
  - Tremor [None]

NARRATIVE: CASE EVENT DATE: 20150511
